FAERS Safety Report 13336444 (Version 1)
Quarter: 2017Q1

REPORT INFORMATION
  Report Type: Other
  Country: GB (occurrence: US)
  Receive Date: 20170315
  Receipt Date: 20170315
  Transmission Date: 20170428
  Serious: Yes (Hospitalization, Other)
  Sender: FDA-Public Use
  Company Number: US-CLARIS PHARMASERVICES-1064250

PATIENT
  Age: 27 Year
  Sex: Female

DRUGS (2)
  1. HALOPERIDOL. [Suspect]
     Active Substance: HALOPERIDOL
     Indication: AGITATION
  2. HALOPERIDOL. [Suspect]
     Active Substance: HALOPERIDOL
     Indication: ANXIETY

REACTIONS (3)
  - Uterine atony [None]
  - Exposure during pregnancy [None]
  - Dystonia [Recovered/Resolved]
